FAERS Safety Report 10309203 (Version 1)
Quarter: 2014Q3

REPORT INFORMATION
  Report Type: Spontaneous
  Country: CA (occurrence: None)
  Receive Date: 20140714
  Receipt Date: 20140714
  Transmission Date: 20150326
  Serious: Yes (Death, Other)
  Sender: FDA-Public Use
  Company Number: ADR-2014-01201

PATIENT

DRUGS (4)
  1. HYDROMORPHONE INTRATHECAL [Suspect]
     Active Substance: HYDROMORPHONE
  2. BUPIVACAINE [Suspect]
     Active Substance: BUPIVACAINE
  3. CLONIDINE. [Suspect]
     Active Substance: CLONIDINE
  4. BACLOFEN INTRATHECAL [Suspect]
     Active Substance: BACLOFEN

REACTIONS (2)
  - Device malfunction [None]
  - Device breakage [None]
